FAERS Safety Report 5329825-5 (Version None)
Quarter: 2007Q2

REPORT INFORMATION
  Report Type: 
  Country: None (occurrence: None)
  Receive Date: 20070517
  Receipt Date: 20070517
  Transmission Date: 20071010
  Serious: Yes (Other)
  Sender: FDA-Public Use
  Company Number: None

PATIENT
  Sex: Female
  Weight: 63.5036 kg

DRUGS (1)
  1. PATADAY [Suspect]
     Indication: EYE ALLERGY
     Dosage: 1 DROP ON OU QHS AT BEDTIME EYE DROPS
     Route: 047
     Dates: start: 20070427

REACTIONS (5)
  - DYSPHAGIA [None]
  - INSOMNIA [None]
  - PAIN IN EXTREMITY [None]
  - PALPITATIONS [None]
  - TREMOR [None]
